FAERS Safety Report 6541036-4 (Version None)
Quarter: 2010Q1

REPORT INFORMATION
  Report Type: 
  Country: None (occurrence: None)
  Receive Date: 20100118
  Receipt Date: 20100105
  Transmission Date: 20100710
  Serious: Yes (Other)
  Sender: FDA-Public Use
  Company Number: GB-ELI_LILLY_AND_COMPANY-GB200911005327

PATIENT
  Age: 74 Year
  Sex: Male

DRUGS (4)
  1. ALIMTA [Suspect]
     Indication: PLEURAL MESOTHELIOMA MALIGNANT
     Dosage: UNK, UNKNOWN
     Route: 065
  2. ALIMTA [Suspect]
     Dosage: 50% REDUCED, UNKNOWN
     Route: 065
  3. CISPLATIN [Concomitant]
     Indication: PLEURAL MESOTHELIOMA MALIGNANT
     Dosage: UNK, UNKNOWN
     Route: 065
  4. CISPLATIN [Concomitant]
     Dosage: 50% REDUCED, UNKNOWN
     Route: 065

REACTIONS (3)
  - FATIGUE [None]
  - HEPATIC FUNCTION ABNORMAL [None]
  - NAUSEA [None]
